FAERS Safety Report 7505036 (Version 3)
Quarter: 2014Q1

REPORT INFORMATION
  Report Type: Spontaneous
  Country: US (occurrence: US)
  Receive Date: 20100728
  Receipt Date: 20140108
  Transmission Date: 20141002
  Serious: Yes (Other)
  Sender: FDA-Public Use
  Company Number: US-BAYER-201028663NA

PATIENT
  Age: 27 Year
  Sex: Female
  Weight: 54 kg

DRUGS (1)
  1. YASMIN [Suspect]
     Indication: PRODUCT USED FOR UNKNOWN INDICATION
     Dosage: UNK
     Route: 048
     Dates: start: 2003

REACTIONS (9)
  - Cholelithiasis [None]
  - Cholecystitis chronic [None]
  - Abdominal pain [None]
  - Nausea [None]
  - Irritable bowel syndrome [None]
  - Diarrhoea [None]
  - Diarrhoea [None]
  - Dyspepsia [None]
  - Food intolerance [None]
